FAERS Safety Report 7875329-5 (Version None)
Quarter: 2011Q4

REPORT INFORMATION
  Report Type: 
  Country: None (occurrence: None)
  Receive Date: 20111031
  Receipt Date: 20110726
  Transmission Date: 20120403
  Serious: Yes (Other)
  Sender: FDA-Public Use
  Company Number: US-BAYER-2011-031896

PATIENT
  Age: 64 Year
  Sex: Male
  Weight: 106.58 kg

DRUGS (16)
  1. COPAXONE [Concomitant]
     Indication: RELAPSING-REMITTING MULTIPLE SCLEROSIS
     Dosage: UNK
     Dates: start: 20110601
  2. ASPIRIN [Concomitant]
     Dosage: 325 MG, QD 2 TABS
     Route: 048
  3. LISINOPRIL [Concomitant]
     Dosage: 10 MG, QD
     Route: 048
  4. NUVIGIL [Concomitant]
     Indication: FATIGUE
     Dosage: 150 MG, QD, 1 Q AM
     Dates: start: 20100101
  5. PRAVASTATIN [Concomitant]
     Dosage: 40 MG, QD
     Route: 048
  6. ACETAMINOPHEN [Concomitant]
     Indication: HEADACHE
     Dosage: 1-2 TIMES A WEEK
  7. NABUMETONE [Concomitant]
     Dosage: 500 MG, QD
     Route: 048
  8. PROVIGIL [Concomitant]
     Indication: FATIGUE
     Dosage: 200 MG, QD
     Route: 048
  9. INTERFERON BETA-1B [Suspect]
     Indication: RELAPSING-REMITTING MULTIPLE SCLEROSIS
     Dosage: UNK
     Dates: start: 20080213, end: 20080616
  10. INTERFERON BETA-1B [Suspect]
     Dosage: 8 MIU, QOD
     Route: 058
     Dates: start: 20081023, end: 20110404
  11. ASPIRIN [Concomitant]
     Dosage: 325 MG, QD 2 TABS
     Route: 048
  12. ASPIRIN [Concomitant]
     Dosage: 81 MG, QD
  13. MULTI-VITAMIN [Concomitant]
  14. PHISOHEX [Concomitant]
     Indication: PROPHYLAXIS
     Dosage: UNK, QOD
     Route: 061
  15. FAMPRIDINE [Concomitant]
     Indication: FATIGUE
     Dosage: 10 MG, BID
     Route: 048
     Dates: start: 20100101
  16. MELOXICAM [Concomitant]

REACTIONS (5)
  - CUTANEOUS LUPUS ERYTHEMATOSUS [None]
  - SWELLING [None]
  - INJECTION SITE REACTION [None]
  - SKIN DISORDER [None]
  - RASH [None]
